FAERS Safety Report 7302758-0 (Version None)
Quarter: 2011Q1

REPORT INFORMATION
  Report Type: 
  Country: None (occurrence: None)
  Receive Date: 20110218
  Receipt Date: 20110205
  Transmission Date: 20110831
  Serious: Yes (Life-Threatening, Hospitalization)
  Sender: FDA-Public Use
  Company Number: US-CELGENEUS-163-21880-10121055

PATIENT
  Sex: Male
  Weight: 79.4 kg

DRUGS (11)
  1. CALCIUM WITH VITAMIN D [Concomitant]
     Route: 048
     Dates: start: 20100409
  2. TRAMADOL HCL [Concomitant]
     Route: 048
     Dates: start: 20100409
  3. CYMBALTA [Concomitant]
     Route: 048
     Dates: start: 20100409
  4. DEXAMETHASONE [Concomitant]
     Route: 065
  5. REVLIMID [Suspect]
     Indication: MULTIPLE MYELOMA
     Route: 048
     Dates: start: 20100322
  6. REVLIMID [Suspect]
     Route: 048
  7. LAMICTAL [Concomitant]
     Route: 048
     Dates: start: 20100409
  8. DEXAMETHASONE [Concomitant]
     Route: 048
     Dates: start: 20100406
  9. RISPERDAL [Concomitant]
     Route: 048
     Dates: start: 20100409
  10. DARVOCET-N 100 [Concomitant]
     Indication: PAIN
     Dosage: 100-650MG
     Route: 065
     Dates: start: 20100811
  11. AREDIA [Concomitant]
     Indication: MULTIPLE MYELOMA
     Route: 065

REACTIONS (2)
  - DEEP VEIN THROMBOSIS [None]
  - CELLULITIS [None]
